FAERS Safety Report 18211186 (Version 2)
Quarter: 2021Q3

REPORT INFORMATION
  Report Type: Report from Study
  Country: None (occurrence: US)
  Receive Date: 20200831
  Receipt Date: 20210709
  Transmission Date: 20211014
  Serious: Yes (Hospitalization)
  Sender: FDA-Public Use
  Company Number: US-ABBVIE-20K-163-3542422-00

PATIENT
  Age: 56 Year
  Sex: Female

DRUGS (4)
  1. HUMIRA [Suspect]
     Active Substance: ADALIMUMAB
     Indication: ANKYLOSING SPONDYLITIS
     Route: 058
     Dates: start: 20200713, end: 20200713
  2. LEFLUNOMIDE. [Concomitant]
     Active Substance: LEFLUNOMIDE
     Indication: ANKYLOSING SPONDYLITIS
  3. METHOTREXATE. [Concomitant]
     Active Substance: METHOTREXATE
     Indication: PRODUCT USED FOR UNKNOWN INDICATION
     Dates: start: 202012, end: 2021
  4. HUMIRA [Suspect]
     Active Substance: ADALIMUMAB
     Indication: CROHN^S DISEASE
     Route: 058
     Dates: start: 20200925

REACTIONS (16)
  - Back pain [Recovering/Resolving]
  - Hypokalaemia [Not Recovered/Not Resolved]
  - Nausea [Not Recovered/Not Resolved]
  - Defaecation urgency [Recovering/Resolving]
  - Depressed mood [Recovered/Resolved]
  - Arthralgia [Recovering/Resolving]
  - Intestinal obstruction [Unknown]
  - Abdominal distension [Recovering/Resolving]
  - Joint stiffness [Recovering/Resolving]
  - Crohn^s disease [Unknown]
  - Loss of personal independence in daily activities [Recovering/Resolving]
  - Frequent bowel movements [Recovering/Resolving]
  - Anxiety [Unknown]
  - Urinary tract infection [Recovered/Resolved]
  - Injection site haemorrhage [Unknown]
  - Insomnia [Recovering/Resolving]

NARRATIVE: CASE EVENT DATE: 2020
